FAERS Safety Report 4984891-1 (Version None)
Quarter: 2006Q2

REPORT INFORMATION
  Report Type: 
  Country: None (occurrence: None)
  Receive Date: 20060427
  Receipt Date: 20050803
  Transmission Date: 20061013
  Serious: Yes (Hospitalization, Other)
  Sender: FDA-Public Use
  Company Number: AR-BRISTOL-MYERS SQUIBB COMPANY-13061932

PATIENT
  Age: 62 Year
  Sex: Male

DRUGS (7)
  1. MURAGLITAZAR [Suspect]
     Indication: DIABETES MELLITUS NON-INSULIN-DEPENDENT
     Route: 048
     Dates: start: 20050215, end: 20050802
  2. METFORMIN HYDROCHLORIDE [Suspect]
     Indication: DIABETES MELLITUS NON-INSULIN-DEPENDENT
     Route: 048
     Dates: start: 20031015, end: 20050802
  3. ENALAPRIL MALEATE [Concomitant]
     Dates: start: 20030617
  4. ASPIRIN [Concomitant]
     Dates: start: 20010506
  5. DOXAZOSIN [Concomitant]
     Dates: start: 20030512
  6. GLIMEPIRIDE [Concomitant]
     Dates: start: 20050803
  7. SINTROM [Concomitant]
     Dates: start: 20050803

REACTIONS (3)
  - ANGINA PECTORIS [None]
  - ATRIAL FIBRILLATION [None]
  - ATRIAL FLUTTER [None]
